FAERS Safety Report 18842617 (Version 9)
Quarter: 2021Q3

REPORT INFORMATION
  Report Type: Spontaneous
  Country: PL (occurrence: PL)
  Receive Date: 20210203
  Receipt Date: 20210929
  Transmission Date: 20211014
  Serious: Yes (Hospitalization, Other)
  Sender: FDA-Public Use
  Company Number: PL-MYLANLABS-2021M1006393

PATIENT
  Age: 68 Year
  Sex: Male

DRUGS (32)
  1. ATORVASTATIN [Interacting]
     Active Substance: ATORVASTATIN
     Indication: ATRIAL FIBRILLATION
     Dosage: 40 MILLIGRAM, QD
  2. METOPROLOL. [Interacting]
     Active Substance: METOPROLOL
     Indication: CEREBROVASCULAR ACCIDENT
     Dosage: 100 MILLIGRAM
     Route: 048
  3. FUROSEMIDE. [Interacting]
     Active Substance: FUROSEMIDE
     Indication: CEREBROVASCULAR ACCIDENT
     Dosage: 40 MILLIGRAM
     Route: 048
  4. CIPROFLOXACIN. [Interacting]
     Active Substance: CIPROFLOXACIN
     Indication: INFECTION
  5. XARELTO [Interacting]
     Active Substance: RIVAROXABAN
     Indication: ATRIAL FIBRILLATION
     Dosage: 20 MILLIGRAM
     Route: 048
  6. RIVAROXABAN [Interacting]
     Active Substance: RIVAROXABAN
     Indication: CEREBROVASCULAR ACCIDENT
     Dosage: 20 MILLIGRAM
     Route: 048
  7. FLUCONAZOLE. [Interacting]
     Active Substance: FLUCONAZOLE
     Indication: ANTIBIOTIC PROPHYLAXIS
     Dosage: 200 MILLIGRAM
  8. TRAZODONE [Interacting]
     Active Substance: TRAZODONE HYDROCHLORIDE
     Indication: INSOMNIA
     Dosage: 50 MILLIGRAM, QD (3 HOURS BEFORE BEDTIME)
  9. QUETIAPINE. [Concomitant]
     Active Substance: QUETIAPINE
     Dosage: UNK
  10. QUETIAPINE. [Interacting]
     Active Substance: QUETIAPINE
     Dosage: 50 MILLIGRAM
  11. DIAZEPAM. [Interacting]
     Active Substance: DIAZEPAM
     Indication: INSOMNIA
     Dosage: 10 MILLIGRAM, QD
  12. CIPROFLOXACIN. [Interacting]
     Active Substance: CIPROFLOXACIN
     Indication: INFECTIOUS DISEASE CARRIER
     Dosage: 500 MILLIGRAM (2X500MG)
     Route: 048
  13. CIPROFLOXACIN. [Interacting]
     Active Substance: CIPROFLOXACIN
     Indication: ANTIBIOTIC PROPHYLAXIS
     Dosage: 1000 MILLIGRAM, QD
     Route: 048
  14. CETIRIZINE [Interacting]
     Active Substance: CETIRIZINE HYDROCHLORIDE
     Indication: PRURITUS GENITAL
     Dosage: 10 MILLIGRAM, QD
     Route: 065
  15. FUROSEMIDE. [Interacting]
     Active Substance: FUROSEMIDE
     Indication: CARDIOVASCULAR DISORDER
  16. TRAZODONE [Interacting]
     Active Substance: TRAZODONE HYDROCHLORIDE
     Indication: SOMNOLENCE
  17. RIVAROXABAN [Interacting]
     Active Substance: RIVAROXABAN
     Indication: ATRIAL FIBRILLATION
  18. CIPROFLOXACIN. [Interacting]
     Active Substance: CIPROFLOXACIN
     Indication: PRURITUS GENITAL
  19. CETIRIZINE DIHYDROCHLORIDE [Interacting]
     Active Substance: CETIRIZINE HYDROCHLORIDE
     Indication: OFF LABEL USE
     Dosage: 10 MILLIGRAM, QD
  20. CETIRIZINE DIHYDROCHLORIDE [Interacting]
     Active Substance: CETIRIZINE HYDROCHLORIDE
     Indication: PRURITUS GENITAL
  21. FUROSEMIDE. [Concomitant]
     Active Substance: FUROSEMIDE
     Dosage: UNK
  22. QUETIAPINE. [Interacting]
     Active Substance: QUETIAPINE
     Dosage: 50 MILLIGRAM, QD (INCREASED AT NIGHT)
  23. METOPROLOL. [Interacting]
     Active Substance: METOPROLOL
     Indication: ATRIAL FIBRILLATION
     Dosage: 100 MG, PER DAY
  24. FLUCONAZOLE. [Interacting]
     Active Substance: FLUCONAZOLE
     Indication: INFECTIOUS DISEASE CARRIER
     Dosage: 100 MILLIGRAM, BID
  25. FLUCONAZOLE. [Interacting]
     Active Substance: FLUCONAZOLE
     Indication: INFECTION
     Dosage: UNK
  26. METOPROLOL. [Concomitant]
     Active Substance: METOPROLOL
     Dosage: UNK
  27. QUETIAPINE. [Suspect]
     Active Substance: QUETIAPINE
     Indication: INSOMNIA
     Dosage: 25 MILLIGRAM, QD (INITIAL DOSE AT NIGHT)
     Route: 065
  28. ATORVASTATIN [Interacting]
     Active Substance: ATORVASTATIN
     Indication: CEREBROVASCULAR ACCIDENT
     Dosage: 40 MILLIGRAM
     Route: 048
  29. FUROSEMIDE. [Interacting]
     Active Substance: FUROSEMIDE
     Indication: ATRIAL FIBRILLATION
  30. DIAZEPAM. [Interacting]
     Active Substance: DIAZEPAM
     Dosage: 10 MILLIGRAM (HALF  HOUR BEFORE BEDTIME)
  31. FLUCONAZOLE. [Interacting]
     Active Substance: FLUCONAZOLE
     Indication: PRURITUS GENITAL
     Dosage: 100 MG, 2X PER DAY
  32. CETIRIZINE [Interacting]
     Active Substance: CETIRIZINE HYDROCHLORIDE
     Indication: SOMNOLENCE

REACTIONS (14)
  - Genital haemorrhage [Unknown]
  - Somnolence [Unknown]
  - Pruritus [Recovered/Resolved]
  - Contraindicated product administered [Unknown]
  - Off label use [Unknown]
  - Product use in unapproved indication [Unknown]
  - Pruritus genital [Recovered/Resolved]
  - Drug level increased [Unknown]
  - Insomnia [Unknown]
  - Haemorrhage [Unknown]
  - Fall [Unknown]
  - Drug ineffective [Unknown]
  - Penis injury [Recovered/Resolved]
  - Drug interaction [Unknown]
